FAERS Safety Report 7532562-X (Version None)
Quarter: 2011Q2

REPORT INFORMATION
  Report Type: 
  Country: None (occurrence: None)
  Receive Date: 20110608
  Receipt Date: 20110527
  Transmission Date: 20111010
  Serious: Yes (Other)
  Sender: FDA-Public Use
  Company Number: PHHY2011BR46485

PATIENT
  Sex: Female

DRUGS (2)
  1. DIOVAN [Suspect]
     Indication: HYPERTENSION
     Dosage: 1 DF DAILY
     Route: 048
  2. DIOVAN [Suspect]
     Dosage: 2 DF DAILY
     Route: 048

REACTIONS (3)
  - BLOOD PRESSURE INCREASED [None]
  - NECK PAIN [None]
  - MALAISE [None]
